FAERS Safety Report 4474438-0 (Version None)
Quarter: 2004Q4

REPORT INFORMATION
  Report Type: 
  Country: None (occurrence: None)
  Receive Date: 20041012
  Receipt Date: 20040924
  Transmission Date: 20050328
  Serious: Yes (Death, Hospitalization)
  Sender: FDA-Public Use
  Company Number: 2004-BP-02737NB

PATIENT
  Age: 81 Year
  Sex: Male

DRUGS (4)
  1. MEXITIL (MEXILETINE HYDROCHLORIDE) (KA) [Suspect]
     Dosage: 300 MG (100 MG) , PO
     Route: 048
     Dates: start: 20040301, end: 20040301
  2. TOWART L (NIFEDIPINE) (TA) [Concomitant]
  3. GOSHA-JINKI-GAN (HERBAL MEDICINE) (GR) [Concomitant]
  4. SEOGRUMIN (GLIBENCLAMIDE) (TA) [Concomitant]

REACTIONS (5)
  - INFLAMMATION [None]
  - RESPIRATORY DISORDER [None]
  - SEPSIS [None]
  - STAPHYLOCOCCAL INFECTION [None]
  - STEVENS-JOHNSON SYNDROME [None]
